FAERS Safety Report 4440431-7 (Version None)
Quarter: 2004Q3

REPORT INFORMATION
  Report Type: 
  Country: None (occurrence: None)
  Receive Date: 20040903
  Receipt Date: 20040826
  Transmission Date: 20050211
  Serious: Yes (Hospitalization)
  Sender: FDA-Public Use
  Company Number: US-JNJFOC-20040809447

PATIENT
  Sex: Male
  Weight: 119.3 kg

DRUGS (2)
  1. REMICADE [Suspect]
     Indication: RHEUMATOID ARTHRITIS
     Route: 042
  2. COUMADIN [Concomitant]
     Dates: start: 19740101

REACTIONS (5)
  - ATRIAL FIBRILLATION [None]
  - HAEMODIALYSIS [None]
  - PLATELET COUNT DECREASED [None]
  - PNEUMONIA [None]
  - RENAL FAILURE ACUTE [None]
